FAERS Safety Report 15483294 (Version 1)
Quarter: 2018Q4

REPORT INFORMATION
  Report Type: Spontaneous
  Country: MX (occurrence: MX)
  Receive Date: 20181010
  Receipt Date: 20181010
  Transmission Date: 20190205
  Serious: Yes (Other)
  Sender: FDA-Public Use
  Company Number: MX-BIOMARINAP-MX-2018-120234

PATIENT
  Age: 23 Year
  Sex: Female
  Weight: 37 kg

DRUGS (3)
  1. MAG.VALPROATE [Concomitant]
     Indication: EPILEPSY
     Dosage: UNK
     Dates: start: 2011
  2. LEVETIRACETAM. [Concomitant]
     Active Substance: LEVETIRACETAM
     Indication: EPILEPSY
     Dosage: UNK
     Dates: start: 2011
  3. ALDURAZYME [Suspect]
     Active Substance: LARONIDASE
     Indication: MUCOPOLYSACCHARIDOSIS I
     Dosage: 7 DOSAGE FORM, QW
     Route: 041
     Dates: start: 2011, end: 201809

REACTIONS (1)
  - Seizure [Recovered/Resolved]

NARRATIVE: CASE EVENT DATE: 201809
